FAERS Safety Report 5822196-7 (Version None)
Quarter: 2008Q3

REPORT INFORMATION
  Report Type: 
  Country: None (occurrence: None)
  Receive Date: 20080721
  Receipt Date: 20080710
  Transmission Date: 20090109
  Serious: Yes (Hospitalization)
  Sender: FDA-Public Use
  Company Number: 2008AL008183

PATIENT
  Age: 50 Year
  Sex: Female

DRUGS (13)
  1. GABAPENTIN [Suspect]
     Dates: start: 20080701
  2. MORPHINE [Concomitant]
  3. PARACETAMOL [Concomitant]
  4. GENTAMICIN [Concomitant]
  5. DALTEPARIN SODIUM [Concomitant]
  6. CLINDAMYCIN [Concomitant]
  7. METOCLOPRAMIDE [Concomitant]
  8. CYCLIZINE [Concomitant]
  9. PROCHLORPERAZINE [Concomitant]
  10. GRANISETRON HCL [Concomitant]
  11. BUPRENORPHINE HCL [Concomitant]
  12. TRAMADOL HCL [Concomitant]
  13. PREMARIN [Concomitant]

REACTIONS (2)
  - PSYCHOTIC DISORDER [None]
  - SOMNOLENCE [None]
